FAERS Safety Report 6413544-8 (Version None)
Quarter: 2009Q4

REPORT INFORMATION
  Report Type: 
  Country: None (occurrence: None)
  Receive Date: 20091026
  Receipt Date: 20091012
  Transmission Date: 20100525
  Serious: Yes (Other)
  Sender: FDA-Public Use
  Company Number: PHHY2009US44345

PATIENT
  Age: 38 Year
  Sex: Female

DRUGS (5)
  1. CALCITONIN [Suspect]
     Indication: BLOOD CALCIUM INCREASED
     Dosage: UNK
     Route: 045
  2. CALCITONIN [Suspect]
     Indication: CALCIUM IONISED INCREASED
  3. CALCITONIN [Suspect]
     Indication: HYPERPARATHYROIDISM
  4. DIURETICS [Concomitant]
  5. HYDRATION [Concomitant]

REACTIONS (3)
  - DRUG EXPOSURE DURING PREGNANCY [None]
  - NORMAL NEWBORN [None]
  - PARATHYROID GLAND OPERATION [None]
